FAERS Safety Report 7621773-0 (Version None)
Quarter: 2011Q3

REPORT INFORMATION
  Report Type: 
  Country: None (occurrence: None)
  Receive Date: 20110719
  Receipt Date: 20110706
  Transmission Date: 20111222
  Serious: Yes (Death, Hospitalization)
  Sender: FDA-Public Use
  Company Number: JP-MYLANLABS-2011S1014256

PATIENT
  Age: 6 Decade
  Sex: Male

DRUGS (5)
  1. PREDNISOLONE [Suspect]
     Dosage: 30MG DAILY
     Route: 065
     Dates: start: 20080101
  2. VORICONAZOLE [Suspect]
     Indication: ASPERGILLOSIS
     Dosage: LOADING DOSE
     Route: 042
  3. VORICONAZOLE [Suspect]
     Dosage: MAINTENANCE DOSE OF 200MG DAILY (4 MG/KG)
     Route: 042
  4. PREDNISOLONE [Suspect]
     Dosage: 15MG DAILY
     Route: 065
     Dates: start: 20080101
  5. METHYLPREDNISOLONE [Suspect]
     Dosage: 500MG DAILY; PULSE THERAPY
     Route: 065

REACTIONS (2)
  - LOWER RESPIRATORY TRACT INFECTION FUNGAL [None]
  - RESPIRATORY FAILURE [None]
